FAERS Safety Report 6792072-4 (Version None)
Quarter: 2010Q2

REPORT INFORMATION
  Report Type: 
  Country: None (occurrence: None)
  Receive Date: 20100624
  Receipt Date: 20081022
  Transmission Date: 20101027
  Serious: No
  Sender: FDA-Public Use
  Company Number: US-PFIZER INC-2008061108

PATIENT
  Age: 54 Year

DRUGS (1)
  1. GEODON [Suspect]
     Indication: BIPOLAR I DISORDER
     Route: 048
     Dates: start: 20080707

REACTIONS (4)
  - FATIGUE [None]
  - SEDATION [None]
  - SLEEP DISORDER [None]
  - WEIGHT DECREASED [None]
